FAERS Safety Report 4899062-7 (Version None)
Quarter: 2006Q1

REPORT INFORMATION
  Report Type: 
  Country: None (occurrence: None)
  Receive Date: 20060106
  Receipt Date: 20051018
  Transmission Date: 20060701
  Serious: No
  Sender: FDA-Public Use
  Company Number: 200512245BWH

PATIENT
  Sex: Male

DRUGS (5)
  1. LEVITRA [Suspect]
     Indication: ERECTILE DYSFUNCTION
     Dosage: 20 MG, TOTAL DAILY, ORAL
     Route: 048
  2. BENICAR [Concomitant]
  3. ACE INIHIBITORS [Concomitant]
  4. HEART AGENTS [Concomitant]
  5. BLOOD PRESSURE REDUCING AGENTS [Concomitant]

REACTIONS (1)
  - HYPOTENSION [None]
